FAERS Safety Report 19170002 (Version 1)
Quarter: 2021Q2

REPORT INFORMATION
  Report Type: Report from Study
  Country: KR (occurrence: KR)
  Receive Date: 20210422
  Receipt Date: 20210422
  Transmission Date: 20210717
  Serious: Yes (Death)
  Sender: FDA-Public Use
  Company Number: KR-TAKEDA-2021TUS025566

PATIENT
  Age: 50 Year
  Sex: Male
  Weight: 57.9 kg

DRUGS (6)
  1. COBICIN [Concomitant]
     Indication: PROPHYLAXIS
     Dosage: 13.5 MILLIGRAM
     Route: 042
     Dates: start: 20210310, end: 20210406
  2. KYTRIL [Concomitant]
     Active Substance: GRANISETRON HYDROCHLORIDE
     Indication: PROPHYLAXIS OF NAUSEA AND VOMITING
     Dosage: 3 MILLIGRAM, QD
     Route: 042
     Dates: start: 20210401, end: 20210406
  3. DILATREND [Concomitant]
     Active Substance: CARVEDILOL
     Indication: PROPHYLAXIS
     Dosage: 6.25 MILLIGRAM, QOD
     Route: 048
     Dates: start: 20210224, end: 20210406
  4. BRIGATINIB [Suspect]
     Active Substance: BRIGATINIB
     Indication: NON-SMALL CELL LUNG CANCER
     Dosage: 90 MILLIGRAM, QD
     Route: 048
     Dates: start: 20210401, end: 20210407
  5. FOLCID [Concomitant]
     Indication: ANAEMIA PROPHYLAXIS
     Dosage: 1 MILLIGRAM, QD
     Route: 048
     Dates: start: 20210222, end: 20210407
  6. SYNTHYROXINE [Concomitant]
     Active Substance: LEVOTHYROXINE SODIUM
     Indication: THYROID CANCER
     Dosage: 50 MICROGRAM, QD
     Route: 048
     Dates: start: 201511, end: 20210407

REACTIONS (1)
  - Dyspnoea [Fatal]

NARRATIVE: CASE EVENT DATE: 20210406
